FAERS Safety Report 14655287 (Version 1)
Quarter: 2018Q1

REPORT INFORMATION
  Report Type: Report from Study
  Country: NZ (occurrence: NZ)
  Receive Date: 20180319
  Receipt Date: 20180319
  Transmission Date: 20180509
  Serious: Yes (Other)
  Sender: FDA-Public Use
  Company Number: NZ-MYLANLABS-2018M1016680

PATIENT
  Age: 9 Year
  Sex: Male

DRUGS (7)
  1. THIOPENTONE                        /00053401/ [Suspect]
     Active Substance: THIOPENTAL
     Indication: INDUCTION OF ANAESTHESIA
     Dosage: UNK
     Route: 065
  2. FENTANYL. [Suspect]
     Active Substance: FENTANYL
     Indication: INDUCTION OF ANAESTHESIA
     Dosage: UNK
     Route: 065
  3. ISOFLURANE. [Suspect]
     Active Substance: ISOFLURANE
     Indication: MAINTENANCE OF ANAESTHESIA
     Dosage: UNK
     Route: 065
  4. ROCURONIUM [Concomitant]
     Active Substance: ROCURONIUM BROMIDE
     Indication: ENDOTRACHEAL INTUBATION
     Dosage: UNK
     Route: 065
  5. NITROUS OXIDE. [Suspect]
     Active Substance: NITROUS OXIDE
     Indication: MAINTENANCE OF ANAESTHESIA
     Dosage: UNK
     Route: 065
  6. VECURONIUM [Concomitant]
     Active Substance: VECURONIUM BROMIDE
     Indication: ENDOTRACHEAL INTUBATION
     Dosage: UNK
     Route: 065
  7. SEVOFLURANE. [Suspect]
     Active Substance: SEVOFLURANE
     Indication: INDUCTION OF ANAESTHESIA
     Dosage: UNK
     Route: 065

REACTIONS (1)
  - Hyperthermia malignant [Unknown]
